FAERS Safety Report 19885188 (Version 2)
Quarter: 2022Q1

REPORT INFORMATION
  Report Type: Report from Study
  Country: US (occurrence: None)
  Receive Date: 20210927
  Receipt Date: 20220112
  Transmission Date: 20220423
  Serious: Yes (Hospitalization)
  Sender: FDA-Public Use
  Company Number: US-ROCHE-2916538

PATIENT
  Age: 64 Year
  Sex: Female
  Weight: 50.5 kg

DRUGS (9)
  1. ATEZOLIZUMAB [Suspect]
     Active Substance: ATEZOLIZUMAB
     Indication: Metastatic malignant melanoma
     Route: 041
     Dates: start: 20210830
  2. BEVACIZUMAB [Suspect]
     Active Substance: BEVACIZUMAB
     Indication: Metastatic malignant melanoma
     Route: 042
     Dates: start: 20210830
  3. GADAVIST [Concomitant]
     Active Substance: GADOBUTROL
     Dosage: 1 MMOL/ML
     Dates: start: 20210909
  4. MELATONIN [Concomitant]
     Active Substance: MELATONIN
     Dates: start: 20210220
  5. LOVENOX [Concomitant]
     Active Substance: ENOXAPARIN SODIUM
     Route: 058
     Dates: start: 20210920
  6. MAGNESIUM SULFATE [Concomitant]
     Active Substance: MAGNESIUM SULFATE
     Dosage: 2 GRAM/50 ML (4%)
     Dates: start: 20210920
  7. KLOR-CON [Concomitant]
     Active Substance: POTASSIUM CHLORIDE
     Dosage: 20-80 MEQ
     Dates: start: 20210920
  8. KCL [Concomitant]
     Active Substance: POTASSIUM CHLORIDE
     Dosage: 10 MEQ/100 ML
     Dates: start: 20210920
  9. SODIUM CHLORIDE [Concomitant]
     Active Substance: SODIUM CHLORIDE
     Dates: start: 20210920

REACTIONS (3)
  - Syncope [Recovered/Resolved]
  - Hyponatraemia [Recovered/Resolved]
  - Dehydration [Recovered/Resolved]

NARRATIVE: CASE EVENT DATE: 20210920
